FAERS Safety Report 20960150 (Version 2)
Quarter: 2022Q3

REPORT INFORMATION
  Report Type: Spontaneous
  Country: GB (occurrence: GB)
  Receive Date: 20220615
  Receipt Date: 20220822
  Transmission Date: 20221026
  Serious: Yes (Hospitalization, Other)
  Sender: FDA-Public Use
  Company Number: GB-SUN PHARMACEUTICAL INDUSTRIES LTD-2022RR-340901

PATIENT
  Age: 27 Year
  Sex: Female

DRUGS (3)
  1. DOMPERIDONE\LANSOPRAZOLE [Suspect]
     Active Substance: DOMPERIDONE\LANSOPRAZOLE
     Indication: Prophylaxis
     Dosage: 30 MILLIGRAM
     Route: 065
  2. DOMPERIDONE\LANSOPRAZOLE [Suspect]
     Active Substance: DOMPERIDONE\LANSOPRAZOLE
     Indication: Prophylaxis
     Dosage: 30 MILLIGRAM
     Route: 065
  3. PHENYRAMIDOL [Concomitant]
     Active Substance: PHENYRAMIDOL
     Indication: Musculoskeletal pain
     Dosage: UNK
     Route: 065

REACTIONS (2)
  - Electrocardiogram QT prolonged [Recovered/Resolved]
  - Kounis syndrome [Recovered/Resolved]
